FAERS Safety Report 6749357-7 (Version None)
Quarter: 2010Q2

REPORT INFORMATION
  Report Type: 
  Country: None (occurrence: None)
  Receive Date: 20100601
  Receipt Date: 20100520
  Transmission Date: 20101027
  Serious: Yes (Hospitalization)
  Sender: FDA-Public Use
  Company Number: US-ROCHE-704435

PATIENT
  Sex: Female
  Weight: 94.3 kg

DRUGS (7)
  1. TRASTUZUMAB [Suspect]
     Dosage: LOADING DOSE; TOTAL DOSE: 762 MG, FORM: VIALS. LAST DOSE PRIOR TO SAE: 12 MARCH 2010
     Route: 042
     Dates: start: 20100312
  2. DOCETAXEL [Suspect]
     Dosage: TOTAL DOSE: 150 MG, FORM: VIAL; LAST DOSE PRIOR TO SAE: 12 MARCH 2010
     Route: 042
     Dates: start: 20100312
  3. CARBOPLATIN [Suspect]
     Dosage: DOSE LEVEL: 6 AUC, TOTAL DOSE: 870 MG, FORM: VIAL. DOSE PRIOR TO SAE: 12 MARCH 2010
     Route: 042
     Dates: start: 20100312
  4. METFORMIN HCL [Concomitant]
     Dates: start: 20100210
  5. FLUOCINOLONE ACETONIDE [Concomitant]
     Dosage: DRUG: FLUCINOLONE TOPICAL
     Dates: start: 20100210
  6. AMLODIPINE [Concomitant]
     Dosage: DRUG: AMLODIPINE - BENAZEPRIL
     Dates: start: 20100210
  7. ZOFRAN [Concomitant]

REACTIONS (2)
  - DEHYDRATION [None]
  - HYPOKALAEMIA [None]
